FAERS Safety Report 5358762-5 (Version None)
Quarter: 2007Q2

REPORT INFORMATION
  Report Type: 
  Country: None (occurrence: None)
  Receive Date: 20070615
  Receipt Date: 20070605
  Transmission Date: 20071010
  Serious: Yes (Other)
  Sender: FDA-Public Use
  Company Number: US-AMGEN-US227792

PATIENT
  Age: 61 Year
  Sex: Female

DRUGS (5)
  1. SENSIPAR [Suspect]
     Indication: PARATHYROID TUMOUR MALIGNANT
     Route: 065
     Dates: start: 20040101, end: 20040101
  2. FUROSEMIDE [Concomitant]
     Route: 048
  3. BISPHOSPHONATE [Concomitant]
     Route: 048
  4. ZOLEDRONIC ACID [Concomitant]
     Route: 042
  5. CALCITONIN-SALMON [Concomitant]
     Route: 048

REACTIONS (1)
  - ABDOMINAL DISCOMFORT [None]
